FAERS Safety Report 16260980 (Version 5)
Quarter: 2019Q4

REPORT INFORMATION
  Report Type: Report from Study
  Country: US (occurrence: US)
  Receive Date: 20190501
  Receipt Date: 20191018
  Transmission Date: 20200122
  Serious: Yes (Life-Threatening, Hospitalization, Other)
  Sender: FDA-Public Use
  Company Number: US-ACTELION-A-US2016-133930

PATIENT
  Age: 67 Year
  Sex: Female
  Weight: 70.3 kg

DRUGS (11)
  1. ADCIRCA [Concomitant]
     Active Substance: TADALAFIL
  2. DILTIAZEM. [Concomitant]
     Active Substance: DILTIAZEM
  3. LASIX [Suspect]
     Active Substance: FUROSEMIDE
     Indication: PRODUCT USED FOR UNKNOWN INDICATION
     Dosage: UNK
     Route: 065
     Dates: start: 201605
  4. RUXOLITINIB [Concomitant]
     Active Substance: RUXOLITINIB
     Indication: MYELOFIBROSIS
     Dosage: 15 MG, BID
     Route: 065
     Dates: start: 20151230, end: 20160308
  5. METOLAZONE. [Concomitant]
     Active Substance: METOLAZONE
     Dosage: UNK
     Dates: start: 201605
  6. BUMETANIDE. [Concomitant]
     Active Substance: BUMETANIDE
     Dosage: UNK
     Dates: start: 201606
  7. RUXOLITINIB [Concomitant]
     Active Substance: RUXOLITINIB
     Dosage: 10 MG, BID
     Route: 065
     Dates: start: 20160308
  8. OPSUMIT [Suspect]
     Active Substance: MACITENTAN
     Indication: PULMONARY ARTERIAL HYPERTENSION
     Dosage: 10 MG, QD
     Route: 048
     Dates: start: 20151117
  9. OPSUMIT [Suspect]
     Active Substance: MACITENTAN
     Dosage: 10 MG, QD
     Route: 048
  10. XARELTO [Concomitant]
     Active Substance: RIVAROXABAN
  11. TYVASO [Concomitant]
     Active Substance: TREPROSTINIL

REACTIONS (23)
  - Oedema [Unknown]
  - Anaemia [Recovered/Resolved]
  - Transfusion [Recovered/Resolved]
  - Aspartate aminotransferase increased [Unknown]
  - Fall [Unknown]
  - Acute respiratory failure [Unknown]
  - Blood potassium increased [Unknown]
  - Pulmonary hypertension [Unknown]
  - Blood potassium abnormal [Unknown]
  - Surgery [Unknown]
  - Blood count abnormal [Recovered/Resolved]
  - Condition aggravated [Unknown]
  - Tachycardia [Unknown]
  - Splenomegaly [Not Recovered/Not Resolved]
  - Diarrhoea [Not Recovered/Not Resolved]
  - Palpitations [Recovered/Resolved]
  - Weight increased [Unknown]
  - Dyspnoea [Unknown]
  - Fluid retention [Recovered/Resolved]
  - Fluid overload [Unknown]
  - Blood potassium decreased [Unknown]
  - Abdominal distension [Recovered/Resolved]
  - Chest pain [Recovered/Resolved]

NARRATIVE: CASE EVENT DATE: 201512
